FAERS Safety Report 7509632-5 (Version None)
Quarter: 2011Q2

REPORT INFORMATION
  Report Type: 
  Country: None (occurrence: None)
  Receive Date: 20110527
  Receipt Date: 20110523
  Transmission Date: 20111010
  Serious: No
  Sender: FDA-Public Use
  Company Number: US-US-EMD SERONO, INC.-7004410

PATIENT
  Sex: Female
  Weight: 79 kg

DRUGS (1)
  1. REBIF [Suspect]
     Indication: MULTIPLE SCLEROSIS
     Route: 058
     Dates: start: 20080101, end: 20100101

REACTIONS (4)
  - MUSCLE RIGIDITY [None]
  - ERYTHEMA [None]
  - TREATMENT FAILURE [None]
  - HYPERAESTHESIA [None]
